FAERS Safety Report 21655860 (Version 1)
Quarter: 2022Q4

REPORT INFORMATION
  Report Type: Spontaneous
  Country: US (occurrence: None)
  Receive Date: 20221125
  Receipt Date: 20221125
  Transmission Date: 20230113
  Serious: Yes (Hospitalization)
  Sender: FDA-Public Use
  Company Number: None

PATIENT
  Sex: Female

DRUGS (1)
  1. TADALAFIL [Suspect]
     Active Substance: TADALAFIL
     Indication: Pulmonary arterial hypertension
     Dosage: 20MG DAILY ORAL?
     Route: 048
     Dates: start: 202104

REACTIONS (4)
  - Blood urine present [None]
  - Haematochezia [None]
  - Oesophageal carcinoma [None]
  - Urinary tract infection [None]
